FAERS Safety Report 6930727-9 (Version None)
Quarter: 2010Q3

REPORT INFORMATION
  Report Type: 
  Country: None (occurrence: None)
  Receive Date: 20100818
  Receipt Date: 20070531
  Transmission Date: 20110219
  Serious: Yes (Death, Hospitalization)
  Sender: FDA-Public Use
  Company Number: FR-PFIZER INC-2010101393

PATIENT
  Age: 75 Year
  Sex: Male

DRUGS (4)
  1. IRINOTECAN HCL [Suspect]
     Indication: METASTATIC GASTRIC CANCER
     Dosage: 340 MG, DAY1
     Dates: start: 20061005
  2. FLUOROURACIL [Suspect]
     Indication: METASTATIC GASTRIC CANCER
     Dosage: 750 MG, DAY1
     Route: 040
     Dates: start: 20061005
  3. FLUOROURACIL [Suspect]
     Dosage: 4450 MG, DURING 46 HOURS
     Route: 041
     Dates: start: 20061005
  4. FOLINIC ACID [Suspect]
     Indication: METASTATIC GASTRIC CANCER
     Dosage: 366 MG, DAY1
     Dates: start: 20061005

REACTIONS (3)
  - ABDOMINAL PAIN [None]
  - GASTRIC PERFORATION [None]
  - SEPTIC SHOCK [None]
